FAERS Safety Report 22780547 (Version 2)
Quarter: 2025Q3

REPORT INFORMATION
  Report Type: Other
  Country: CA (occurrence: CA)
  Receive Date: 20230803
  Receipt Date: 20250919
  Transmission Date: 20251021
  Serious: Yes (Other)
  Sender: APOTEX
  Company Number: CA-APOTEX-2023AP011192

PATIENT
  Age: 71 Year
  Sex: Female

DRUGS (2)
  1. DULOXETINE [Suspect]
     Active Substance: DULOXETINE
     Indication: Neuropathic pruritus
     Route: 065
  2. PREGABALIN [Suspect]
     Active Substance: PREGABALIN
     Indication: Neuropathic pruritus
     Route: 065

REACTIONS (21)
  - Femur fracture [Unknown]
  - Fibromyalgia [Unknown]
  - Foot deformity [Unknown]
  - Joint swelling [Unknown]
  - Meralgia paraesthetica [Unknown]
  - Movement disorder [Unknown]
  - Off label use [Unknown]
  - Pain [Unknown]
  - Plantar fasciitis [Unknown]
  - Pneumonitis [Unknown]
  - Polymyalgia rheumatica [Unknown]
  - Psoriasis [Unknown]
  - Psoriatic arthropathy [Unknown]
  - Rib fracture [Unknown]
  - Spinal stenosis [Unknown]
  - Synovitis [Unknown]
  - Weight decreased [Unknown]
  - Hypertension [Unknown]
  - Gait disturbance [Unknown]
  - Pelvic pain [Unknown]
  - Cystitis interstitial [Unknown]
